FAERS Safety Report 4694935-2 (Version None)
Quarter: 2005Q2

REPORT INFORMATION
  Report Type: 
  Country: None (occurrence: None)
  Receive Date: 20050617
  Receipt Date: 20050610
  Transmission Date: 20051028
  Serious: Yes (Other)
  Sender: FDA-Public Use
  Company Number: FRVA20050011

PATIENT
  Age: 35 Year
  Sex: Male

DRUGS (2)
  1. FROVA [Suspect]
     Dosage: 2.5 MG DAILY PO
     Route: 048
     Dates: start: 20031029, end: 20031201
  2. ELETRIPTAN [Suspect]
     Dates: start: 20040306

REACTIONS (1)
  - CATARACT [None]
